FAERS Safety Report 15956303 (Version 1)
Quarter: 2019Q1

REPORT INFORMATION
  Report Type: Report from Study
  Country: US (occurrence: US)
  Receive Date: 20190213
  Receipt Date: 20190213
  Transmission Date: 20190417
  Serious: Yes (Other)
  Sender: FDA-Public Use
  Company Number: US-SA-2019SA035750

PATIENT
  Age: 60 Year
  Sex: Female

DRUGS (5)
  1. ENOXAPARIN SODIUM. [Suspect]
     Active Substance: ENOXAPARIN SODIUM
     Indication: ATRIAL FIBRILLATION
  2. ENOXAPARIN SODIUM. [Suspect]
     Active Substance: ENOXAPARIN SODIUM
     Indication: ABNORMAL CLOTTING FACTOR
  3. ENOXAPARIN SODIUM. [Suspect]
     Active Substance: ENOXAPARIN SODIUM
     Indication: PROTEIN C
  4. ENOXAPARIN SODIUM. [Suspect]
     Active Substance: ENOXAPARIN SODIUM
     Indication: ANTIPHOSPHOLIPID ANTIBODIES
     Dosage: UNK
     Route: 058
     Dates: start: 2004, end: 2006
  5. ENOXAPARIN SODIUM. [Suspect]
     Active Substance: ENOXAPARIN SODIUM
     Indication: PROTEIN DEFICIENCY

REACTIONS (2)
  - Cerebrovascular accident [Not Recovered/Not Resolved]
  - Transient ischaemic attack [Not Recovered/Not Resolved]
